FAERS Safety Report 7323850-0 (Version None)
Quarter: 2011Q1

REPORT INFORMATION
  Report Type: 
  Country: None (occurrence: None)
  Receive Date: 20110301
  Receipt Date: 20110222
  Transmission Date: 20110831
  Serious: Yes (Other)
  Sender: FDA-Public Use
  Company Number: A0914941A

PATIENT
  Sex: Male

DRUGS (1)
  1. VENTOLIN [Suspect]
     Indication: ASTHMA
     Dosage: 2PUFF AS REQUIRED
     Route: 055

REACTIONS (4)
  - FUNGAL INFECTION [None]
  - LOWER RESPIRATORY TRACT INFECTION [None]
  - PRODUCT QUALITY ISSUE [None]
  - ASTHMA [None]
